FAERS Safety Report 21052091 (Version 1)
Quarter: 2022Q3

REPORT INFORMATION
  Report Type: Spontaneous
  Country: TR (occurrence: TR)
  Receive Date: 20220707
  Receipt Date: 20220707
  Transmission Date: 20221027
  Serious: Yes (Hospitalization)
  Sender: FDA-Public Use
  Company Number: TR-NOVARTISPH-NVSC2022TR153530

PATIENT
  Age: 85 Year
  Sex: Male

DRUGS (3)
  1. EXELON [Suspect]
     Active Substance: RIVASTIGMINE TARTRATE
     Indication: Dementia Alzheimer^s type
     Dosage: 4.6 MG QD (PATCH 5 (CM2), 9 MG RIVASTIGMINE BASE), ONE MONTH AGO
     Route: 065
  2. EXELON [Suspect]
     Active Substance: RIVASTIGMINE TARTRATE
     Indication: Dementia Alzheimer^s type
     Dosage: UNK
     Route: 065
  3. BENSERAZIDE HYDROCHLORIDE\LEVODOPA [Concomitant]
     Active Substance: BENSERAZIDE HYDROCHLORIDE\LEVODOPA
     Indication: Product used for unknown indication
     Dosage: UNK
     Route: 065

REACTIONS (6)
  - Loss of consciousness [Recovering/Resolving]
  - Gait inability [Recovering/Resolving]
  - Dysphagia [Recovering/Resolving]
  - Bone pain [Unknown]
  - Inappropriate schedule of product administration [Unknown]
  - Off label use [Unknown]
